FAERS Safety Report 12288336 (Version 1)
Quarter: 2016Q2

REPORT INFORMATION
  Report Type: Spontaneous
  Country: FR (occurrence: FR)
  Receive Date: 20160420
  Receipt Date: 20160420
  Transmission Date: 20160815
  Serious: Yes (Death, Life-Threatening, Hospitalization)
  Sender: FDA-Public Use
  Company Number: FR-ASTRAZENECA-2016SE41921

PATIENT
  Age: 715 Month
  Sex: Male

DRUGS (19)
  1. NORADRENALINE MYLAN [Concomitant]
     Active Substance: NOREPINEPHRINE\NOREPINEPHRINE BITARTRATE
     Indication: BLOOD PRESSURE ABNORMAL
     Dates: start: 201601, end: 20160206
  2. PANTOPRAZOLE [Concomitant]
     Active Substance: PANTOPRAZOLE SODIUM
     Indication: OESOPHAGEAL ULCER
     Dates: start: 201601, end: 20160131
  3. TAHOR [Concomitant]
     Active Substance: ATORVASTATIN CALCIUM
     Indication: MYOCARDIAL INFARCTION
     Route: 048
     Dates: start: 20160126, end: 20160206
  4. COROTROPE [Concomitant]
     Active Substance: MILRINONE
     Indication: CARDIAC FAILURE CONGESTIVE
     Dosage: 10 MG/50 ML
     Route: 042
     Dates: start: 20160127
  5. ADRENALINE [Concomitant]
     Active Substance: EPINEPHRINE
     Route: 042
     Dates: start: 20160127
  6. BRILIQUE [Suspect]
     Active Substance: TICAGRELOR
     Indication: ACUTE CORONARY SYNDROME
     Route: 048
     Dates: start: 20160126, end: 20160206
  7. VOLUVEN [Concomitant]
     Active Substance: HYDROXYETHYL STARCH 130/0.4
     Route: 041
     Dates: start: 201601
  8. HEPARIN SODIUM. [Concomitant]
     Active Substance: HEPARIN SODIUM
     Indication: CARDIAC ASSISTANCE DEVICE USER
     Route: 042
     Dates: start: 20160127, end: 20160205
  9. KARDEGIC [Concomitant]
     Active Substance: ASPIRIN LYSINE
     Indication: ACUTE CORONARY SYNDROME
     Route: 048
     Dates: start: 20160126, end: 20160206
  10. PROPOFOL. [Concomitant]
     Active Substance: PROPOFOL
     Indication: SEDATION
     Dosage: 20 MG/ML, INTRAVENOUS 1 DF PER DAY
     Route: 042
     Dates: start: 20160126, end: 20160206
  11. REMIFENTANIL [Concomitant]
     Active Substance: REMIFENTANIL
     Indication: SEDATION
     Dosage: 100 MCG/ML
     Route: 042
     Dates: start: 20160126, end: 20160206
  12. AMIODARONE [Concomitant]
     Active Substance: AMIODARONE
  13. HEPARIN [Concomitant]
     Active Substance: HEPARIN SODIUM
     Indication: CARDIAC OPERATION
     Route: 042
     Dates: start: 20160205, end: 20160206
  14. XYLOCAINE [Concomitant]
     Active Substance: LIDOCAINE HYDROCHLORIDE
  15. ESOMEPRAZOLE [Concomitant]
     Active Substance: ESOMEPRAZOLE
     Indication: OESOPHAGEAL ULCER
     Route: 042
     Dates: start: 20160201, end: 20160206
  16. DOBUTAMINE [Concomitant]
     Active Substance: DOBUTAMINE\DOBUTAMINE HYDROCHLORIDE
     Dates: start: 20160125
  17. LIDOCAINE. [Concomitant]
     Active Substance: LIDOCAINE
     Dates: start: 201601
  18. AGRASTAT [Concomitant]
     Active Substance: TIROFIBAN HYDROCHLORIDE
     Dates: start: 20160125
  19. CORDARONE [Concomitant]
     Active Substance: AMIODARONE HYDROCHLORIDE
     Indication: VENTRICULAR TACHYCARDIA
     Dosage: 150 MG/3 ML
     Route: 042
     Dates: start: 201601, end: 20160206

REACTIONS (9)
  - Coagulopathy [Fatal]
  - Hyperkalaemia [Unknown]
  - Cardiac procedure complication [Fatal]
  - Procedural haemorrhage [Fatal]
  - Ventricular tachycardia [Unknown]
  - Post procedural haemorrhage [Fatal]
  - Haemorrhage intracranial [Recovered/Resolved]
  - Refractoriness to platelet transfusion [Fatal]
  - Ejection fraction decreased [Unknown]

NARRATIVE: CASE EVENT DATE: 201601
